FAERS Safety Report 6244940-X (Version None)
Quarter: 2009Q2

REPORT INFORMATION
  Report Type: 
  Country: None (occurrence: None)
  Receive Date: 20090625
  Receipt Date: 20090619
  Transmission Date: 20091009
  Serious: Yes (Hospitalization, Other)
  Sender: FDA-Public Use
  Company Number: PHHY2009DE21871

PATIENT
  Sex: Female

DRUGS (2)
  1. VOLTAREN [Suspect]
     Dosage: UNK
     Route: 048
     Dates: start: 20090101
  2. ASPIRIN [Suspect]
     Dosage: 500 MG, BID
     Route: 048
     Dates: start: 20090101, end: 20090101

REACTIONS (1)
  - PULMONARY HAEMORRHAGE [None]
